FAERS Safety Report 6652683-3 (Version None)
Quarter: 2010Q1

REPORT INFORMATION
  Report Type: 
  Country: None (occurrence: None)
  Receive Date: 20100326
  Receipt Date: 20100314
  Transmission Date: 20100710
  Serious: Yes (Hospitalization)
  Sender: FDA-Public Use
  Company Number: IT-RANBAXY-2010RR-32553

PATIENT
  Sex: Female

DRUGS (3)
  1. ACYCLOVIR SODIUM [Suspect]
     Dosage: UNK
  2. ACYCLOVIR SODIUM [Suspect]
     Dosage: 20 MG, UNK
  3. AMOXICILLIN TRIHYDRATE/CLAVULANIC ACID [Suspect]

REACTIONS (3)
  - DYSPNOEA [None]
  - PRURITUS [None]
  - RASH [None]
